FAERS Safety Report 5215446-1 (Version None)
Quarter: 2007Q1

REPORT INFORMATION
  Report Type: 
  Country: None (occurrence: None)
  Receive Date: 20070119
  Receipt Date: 20070119
  Transmission Date: 20070707
  Serious: Yes (Life-Threatening, Hospitalization, Other)
  Sender: FDA-Public Use
  Company Number: None

PATIENT
  Age: 37 Year
  Sex: Female
  Weight: 49.4421 kg

DRUGS (3)
  1. CIMETIDINE HCL [Suspect]
     Dosage: 300MG 3 TIMES A DAY PO
     Route: 048
     Dates: start: 20051123, end: 20060115
  2. CIMETIDINE HCL [Concomitant]
     Dates: start: 20051230, end: 20060302
  3. MORPHINE [Concomitant]

REACTIONS (4)
  - BLOOD PRESSURE DECREASED [None]
  - DRUG HYPERSENSITIVITY [None]
  - PAIN [None]
  - URTICARIA [None]
